FAERS Safety Report 8839679 (Version 1)
Quarter: 2012Q4

REPORT INFORMATION
  Report Type: Spontaneous
  Country: US (occurrence: None)
  Receive Date: 20121012
  Receipt Date: 20121012
  Transmission Date: 20130627
  Serious: Yes (Hospitalization, Disabling)
  Sender: FDA-Public Use
  Company Number: None

PATIENT
  Age: 75 Year
  Sex: Male
  Weight: 90.72 kg

DRUGS (4)
  1. WARFARIN SODIUM [Suspect]
     Indication: ANTICOAGULANT THERAPY
     Dosage: 1  5 mg TAB PER DAY
     Dates: start: 20080812
  2. WARFARIN SODIUM [Suspect]
     Indication: ANTICOAGULANT THERAPY
  3. MINERALS\VITAMINS [Suspect]
     Indication: EYE DISORDER
     Dosage: 4 CAPS PER DAY
     Dates: start: 20080812
  4. MINERALS\VITAMINS [Suspect]
     Indication: PROPHYLAXIS
     Dosage: 4 CAPS PER DAY
     Dates: start: 20080812

REACTIONS (2)
  - Cerebrovascular accident [None]
  - Cerebral haemorrhage [None]
